FAERS Safety Report 7943361 (Version 4)
Quarter: 2014Q3

REPORT INFORMATION
  Report Type: Spontaneous
  Country: DK (occurrence: DK)
  Receive Date: 20110513
  Receipt Date: 20140729
  Transmission Date: 20150326
  Serious: Yes (Other)
  Sender: FDA-Public Use
  Company Number: DK-RANBAXY-2011RR-44285

PATIENT
  Sex: Male

DRUGS (11)
  1. CYMBALTA [Suspect]
     Active Substance: DULOXETINE HYDROCHLORIDE
     Indication: NEURALGIA
  2. KETAMINE [Concomitant]
     Active Substance: KETAMINE
     Indication: PAIN
     Dosage: 100 MG, UNK
     Route: 065
     Dates: start: 20090810, end: 20120226
  3. GABAPENTIN. [Suspect]
     Active Substance: GABAPENTIN
     Indication: NEURALGIA
     Dosage: 3600 MG, QID
     Route: 048
     Dates: start: 20090220, end: 20090912
  4. CYMBALTA [Suspect]
     Active Substance: DULOXETINE HYDROCHLORIDE
     Indication: PAIN
     Dosage: UNK
     Route: 048
     Dates: start: 200901, end: 2010
  5. ZARATOR [Concomitant]
     Active Substance: ATORVASTATIN CALCIUM
     Indication: BLOOD CHOLESTEROL
     Dosage: 80 MG, UNK
     Route: 065
     Dates: start: 200909
  6. ASPIRIN. [Concomitant]
     Active Substance: ASPIRIN
     Indication: PRODUCT USED FOR UNKNOWN INDICATION
     Dosage: 75 MG, UNK
     Route: 065
  7. CYMBALTA [Concomitant]
     Active Substance: DULOXETINE HYDROCHLORIDE
     Indication: PAIN
     Dosage: 120 MG, UNK
     Route: 065
     Dates: start: 20090626, end: 20100226
  8. DIAZEPAM ^DAK^ [Suspect]
     Active Substance: DIAZEPAM
     Indication: PAIN
     Dosage: UNK
     Route: 048
     Dates: start: 200901, end: 2010
  9. DIAZEPAM ^DAK^ [Suspect]
     Active Substance: DIAZEPAM
     Indication: NEURALGIA
  10. LYRICA [Concomitant]
     Active Substance: PREGABALIN
     Indication: PAIN
     Dosage: 120 MG, UNK
     Route: 065
     Dates: start: 20090626, end: 20100302
  11. METHADONE [Concomitant]
     Active Substance: METHADONE HYDROCHLORIDE
     Indication: PAIN
     Dosage: 90 MG, UNK
     Route: 065
     Dates: start: 20090626, end: 20100302

REACTIONS (5)
  - Tooth disorder [Unknown]
  - Disturbance in attention [Not Recovered/Not Resolved]
  - Drug ineffective [Unknown]
  - Erectile dysfunction [Unknown]
  - Fine motor delay [Unknown]
